FAERS Safety Report 5628457-9 (Version None)
Quarter: 2008Q1

REPORT INFORMATION
  Report Type: 
  Country: None (occurrence: None)
  Receive Date: 20080215
  Receipt Date: 20080205
  Transmission Date: 20080703
  Serious: Yes (Other)
  Sender: FDA-Public Use
  Company Number: JP-PFIZER INC-2008011491

PATIENT
  Age: 56 Year
  Sex: Female

DRUGS (7)
  1. ALDACTONE [Suspect]
     Dosage: DAILY DOSE:25MG
     Route: 048
  2. SELOKEN [Concomitant]
     Route: 048
  3. MERCAZOLE [Concomitant]
  4. LASIX [Concomitant]
  5. BEPRICOR [Concomitant]
     Route: 048
  6. FAMOTIDINE [Concomitant]
  7. WARFARIN SODIUM [Concomitant]
     Route: 048

REACTIONS (1)
  - THROMBOCYTOPENIA [None]
